FAERS Safety Report 16040594 (Version 1)
Quarter: 2019Q2

REPORT INFORMATION
  Report Type: Spontaneous
  Country: US (occurrence: US)
  Receive Date: 20190305
  Receipt Date: 20190305
  Transmission Date: 20190711
  Serious: Yes (Other)
  Sender: FDA-Public Use
  Company Number: None

PATIENT
  Age: 50 Year
  Sex: Female
  Weight: 74.25 kg

DRUGS (16)
  1. ADVAIR HFA 230MCG [Concomitant]
  2. ZANAFLEX [Concomitant]
     Active Substance: TIZANIDINE HYDROCHLORIDE
  3. CLONIDINE 0.1MG [Concomitant]
     Active Substance: CLONIDINE
  4. VENTOLIN HFA 90MCG [Concomitant]
  5. PROTONIX [Concomitant]
     Active Substance: PANTOPRAZOLE SODIUM
  6. AUVI-Q AUTO INJECTOR 0.3MG [Concomitant]
  7. BENEDRYL 25MG [Concomitant]
  8. RANITIDINE. [Concomitant]
     Active Substance: RANITIDINE
  9. ZYRTEC [Concomitant]
     Active Substance: CETIRIZINE HYDROCHLORIDE
  10. HYDRALAZINE 25MG [Concomitant]
     Active Substance: HYDRALAZINE HYDROCHLORIDE
  11. ZAFIRLUKAST 20MG [Concomitant]
  12. RELPAX 40MG [Concomitant]
  13. INDOMETHACIN 50MG MYLAN [Concomitant]
     Active Substance: INDOMETHACIN
  14. SUMATRIPTAN INJECTION 6MG [Concomitant]
  15. AIMOVIG [Suspect]
     Active Substance: ERENUMAB-AOOE
     Indication: MIGRAINE
     Dosage: ?          QUANTITY:1 INJECTION(S);OTHER FREQUENCY:MONTHLY;OTHER ROUTE:INJECTION?
     Dates: start: 20180615, end: 20181019
  16. TUMS [Concomitant]
     Active Substance: CALCIUM CARBONATE

REACTIONS (5)
  - Aura [None]
  - Depression [None]
  - Emotional poverty [None]
  - Vomiting [None]
  - Gastritis [None]

NARRATIVE: CASE EVENT DATE: 20180615
